FAERS Safety Report 10003947 (Version 1)
Quarter: 2014Q1

REPORT INFORMATION
  Report Type: Spontaneous
  Country: US (occurrence: US)
  Receive Date: 20140312
  Receipt Date: 20140312
  Transmission Date: 20141002
  Serious: No
  Sender: FDA-Public Use
  Company Number: US-ABBVIE-13P-163-1166881-00

PATIENT
  Age: 14 Year
  Sex: Male
  Weight: 50.85 kg

DRUGS (4)
  1. DEPAKOTE [Suspect]
     Indication: JUVENILE MYOCLONIC EPILEPSY
     Route: 048
     Dates: start: 2012
  2. VENTOLIN [Suspect]
     Indication: ASTHMA
  3. VITAMIN B6 [Concomitant]
     Indication: SUPPLEMENTATION THERAPY
  4. FLOVENT [Concomitant]
     Indication: ASTHMA
     Route: 055

REACTIONS (6)
  - Gingivitis [Not Recovered/Not Resolved]
  - Gingival erythema [Recovering/Resolving]
  - Gingival inflammation [Recovering/Resolving]
  - Gingival bleeding [Not Recovered/Not Resolved]
  - Gingival pain [Recovering/Resolving]
  - Gingival hyperplasia [Recovering/Resolving]
